FAERS Safety Report 23922411 (Version 1)
Quarter: 2024Q2

REPORT INFORMATION
  Report Type: Spontaneous
  Country: FR (occurrence: FR)
  Receive Date: 20240531
  Receipt Date: 20240531
  Transmission Date: 20240716
  Serious: Yes (Other)
  Sender: FDA-Public Use
  Company Number: FR-AFSSAPS-PA2024000967

PATIENT
  Age: 67 Year
  Sex: Female
  Weight: 68 kg

DRUGS (5)
  1. AMOXICILLIN [Suspect]
     Active Substance: AMOXICILLIN
     Indication: Intervertebral discitis
     Dosage: 4 GRAM, 3 TIMES A DAY
     Route: 042
     Dates: start: 20240313, end: 20240314
  2. AMOXICILLIN [Suspect]
     Active Substance: AMOXICILLIN
     Dosage: 2 GRAM, 3 TIMES A DAY
     Route: 042
     Dates: start: 20240313, end: 20240314
  3. AUGMENTIN [Suspect]
     Active Substance: AMOXICILLIN\CLAVULANATE POTASSIUM
     Indication: Intervertebral discitis
     Dosage: 1 DOSAGE FORM, 3 TIMES A DAY (2 TABS OF 500MG/62.5MG EVERY 8 HOURS FOR 7 DAYS)
     Route: 042
     Dates: start: 20240311, end: 20240313
  4. DAFALGAN [Suspect]
     Active Substance: ACETAMINOPHEN
     Indication: Intervertebral discitis
     Dosage: 1000 MILLIGRAM, 3 TIMES A DAY (3 TABLETS PER DAY / 7 DAYS)
     Route: 048
     Dates: start: 20240311
  5. OXYCODONE [Concomitant]
     Active Substance: OXYCODONE\OXYCODONE HYDROCHLORIDE
     Indication: Pain
     Dosage: 1000 MILLIGRAM, 3 TIMES A DAY (3 TABLETS PER DAY / 7 DAYS)
     Route: 065

REACTIONS (1)
  - Cholestatic liver injury [Recovering/Resolving]

NARRATIVE: CASE EVENT DATE: 20240314
